FAERS Safety Report 19303915 (Version 3)
Quarter: 2022Q1

REPORT INFORMATION
  Report Type: Spontaneous
  Country: CA (occurrence: CA)
  Receive Date: 20210525
  Receipt Date: 20220325
  Transmission Date: 20220423
  Serious: Yes (Other)
  Sender: FDA-Public Use
  Company Number: CA-SAMSUNG BIOEPIS-SB-2021-12503

PATIENT
  Age: 61 Year
  Sex: Female
  Weight: 120 kg

DRUGS (2)
  1. INFLIXIMAB [Suspect]
     Active Substance: INFLIXIMAB
     Indication: Neurosarcoidosis
     Route: 042
  2. METHOTREXATE [Concomitant]
     Active Substance: METHOTREXATE
     Indication: Product used for unknown indication
     Dosage: UNKNOWN
     Route: 065

REACTIONS (14)
  - Blood pressure increased [Recovered/Resolved]
  - Condition aggravated [Recovered/Resolved]
  - Inflammation [Recovered/Resolved]
  - Nodule [Recovered/Resolved]
  - Weight increased [Recovered/Resolved]
  - Infusion site inflammation [Recovered/Resolved]
  - Abscess [Recovered/Resolved]
  - Arthropod bite [Recovered/Resolved]
  - Nerve injury [Recovered/Resolved]
  - Tooth disorder [Recovered/Resolved]
  - Drug ineffective [Recovered/Resolved]
  - Intentional product use issue [Recovered/Resolved]
  - Off label use [Recovered/Resolved]
  - Product use in unapproved indication [Unknown]
